FAERS Safety Report 8957726 (Version 2)
Quarter: 2012Q4

REPORT INFORMATION
  Report Type: 
  Country: US (occurrence: US)
  Receive Date: 20121210
  Receipt Date: 20121227
  Transmission Date: 20130627
  Serious: No
  Sender: FDA-Public Use
  Company Number: US-PFIZER INC-2012310080

PATIENT
  Age: 81 Year
  Sex: Female
  Weight: 70.75 kg

DRUGS (1)
  1. LYRICA [Suspect]
     Indication: SEIZURES
     Dosage: UNK, 3x/day
     Dates: start: 20121206, end: 20121207

REACTIONS (6)
  - Feeling drunk [Unknown]
  - Insomnia [Unknown]
  - Drug prescribing error [Unknown]
  - Swelling [Unknown]
  - Oedema peripheral [Unknown]
  - Malaise [Unknown]
